FAERS Safety Report 9407245 (Version 1)
Quarter: 2013Q3

REPORT INFORMATION
  Report Type: Spontaneous
  Country: FR (occurrence: FR)
  Receive Date: 20130718
  Receipt Date: 20130718
  Transmission Date: 20140515
  Serious: Yes (Other)
  Sender: FDA-Public Use
  Company Number: FR-PFIZER INC-2013208274

PATIENT
  Age: 62 Year
  Sex: Female

DRUGS (5)
  1. AMLOR [Suspect]
     Indication: HYPERTENSION
     Dosage: 5 MG, 2X/DAY
     Route: 048
     Dates: start: 201202, end: 20130612
  2. CELLCEPT [Suspect]
     Indication: RENAL TRANSPLANT
     Dosage: 500 MG, 3X/DAY
     Route: 048
     Dates: start: 201008, end: 20130611
  3. NEORAL [Suspect]
     Indication: RENAL TRANSPLANT
     Dosage: 60 MG, 2X/DAY
     Route: 048
     Dates: start: 201008
  4. SOLUPRED [Suspect]
     Indication: RENAL TRANSPLANT
     Dosage: 10 MG, 1X/DAY
     Route: 048
     Dates: start: 201008
  5. LASILIX [Suspect]
     Indication: RENAL FAILURE
     Dosage: 40 MG, 1X/DAY
     Route: 048
     Dates: start: 201008

REACTIONS (1)
  - Pyelonephritis [Unknown]
